FAERS Safety Report 21668206 (Version 2)
Quarter: 2022Q4

REPORT INFORMATION
  Report Type: Report from Study
  Country: FR (occurrence: FR)
  Receive Date: 20221201
  Receipt Date: 20221216
  Transmission Date: 20230113
  Serious: Yes (Death, Life-Threatening, Hospitalization)
  Sender: FDA-Public Use
  Company Number: FR-GLAXOSMITHKLINE-FR2022GSK178386

PATIENT

DRUGS (15)
  1. PLACEBO [Suspect]
     Active Substance: UNSPECIFIED INGREDIENT
     Indication: Asthma
     Dosage: LEFT ARM
     Route: 042
     Dates: start: 20211015
  2. MEPOLIZUMAB [Suspect]
     Active Substance: MEPOLIZUMAB
     Indication: Asthma
     Dosage: 100 MG
     Route: 042
     Dates: start: 20211015
  3. XARELTO [Concomitant]
     Active Substance: RIVAROXABAN
     Indication: Hypertension
     Dosage: 20 MG, QD
     Route: 048
     Dates: start: 20191008
  4. OMEPRAZOLE [Concomitant]
     Active Substance: OMEPRAZOLE
     Indication: Prophylaxis
     Dosage: 20 MG, QD
     Route: 048
     Dates: start: 20160614
  5. DEXAMETHASONE PHOSPHATE [Concomitant]
     Active Substance: DEXAMETHASONE PHOSPHATE
     Indication: Lacrimation increased
     Dosage: 1 MG/ML, PRN
     Dates: start: 2010
  6. VALSARTAN [Concomitant]
     Active Substance: VALSARTAN
     Indication: Hypertension
     Dosage: 16 MG, QD
     Route: 048
     Dates: start: 20200821
  7. AMLODIPINE [Concomitant]
     Active Substance: AMLODIPINE BESYLATE
     Indication: Hypertension
     Dosage: 10 MG, QD
     Route: 048
     Dates: start: 20200821
  8. CITALOPRAM [Concomitant]
     Active Substance: CITALOPRAM HYDROBROMIDE
     Indication: Depression
     Dosage: 20 MG, QID
     Route: 048
     Dates: start: 2010
  9. BETAHISTINE DICHLORHYDRATE [Concomitant]
     Indication: Meniere^s disease
     Dosage: 48 MG, QD
     Route: 048
     Dates: start: 202101
  10. DEVICE [Concomitant]
     Active Substance: DEVICE
     Indication: Sleep apnoea syndrome
     Dosage: UNK
     Route: 055
     Dates: start: 20121213
  11. HYDROCORTISONE [Concomitant]
     Active Substance: HYDROCORTISONE
     Indication: Adrenal insufficiency
     Dosage: 10 MG, BID
     Route: 048
     Dates: start: 20220110
  12. LEVOTHYROXINE [Concomitant]
     Active Substance: LEVOTHYROXINE
     Indication: Hypothyroidism
     Dosage: 50 UG, QD
     Route: 048
     Dates: start: 2010
  13. DESLORATADINE [Concomitant]
     Active Substance: DESLORATADINE
     Indication: Rhinitis prophylaxis
     Dosage: 5 MG, QD
     Route: 048
     Dates: start: 20220419
  14. FLUTICASONE FUROATE [Concomitant]
     Active Substance: FLUTICASONE FUROATE
     Indication: Rhinitis prophylaxis
     Dosage: 2 PUFF(S), QD (NASAL)
     Route: 050
     Dates: start: 20220419
  15. SERETIDE [Concomitant]
     Active Substance: FLUTICASONE PROPIONATE\SALMETEROL XINAFOATE
     Indication: Asthma
     Dosage: 250/25 UG, BID
     Route: 055
     Dates: start: 20220824

REACTIONS (2)
  - Malignant melanoma [Fatal]
  - Metastases to central nervous system [Fatal]

NARRATIVE: CASE EVENT DATE: 20221125
